FAERS Safety Report 8830144 (Version 1)
Quarter: 2012Q4

REPORT INFORMATION
  Report Type: Spontaneous
  Country: US (occurrence: None)
  Receive Date: 20121004
  Receipt Date: 20121004
  Transmission Date: 20130627
  Serious: No
  Sender: FDA-Public Use
  Company Number: VAL_00894_2012

PATIENT

DRUGS (10)
  1. TOPROL [Suspect]
     Indication: HYPERTENSION
     Dosage: DF
  2. TOPROL [Suspect]
     Indication: ATRIAL FIBRILLATION
     Dosage: DF
  3. TOPROL [Suspect]
     Dosage: DF
  4. WELCHOL [Suspect]
     Indication: HYPERCHOLESTEROLAEMIA
     Dosage: 3750 MG QD ORAL
     Dates: start: 2007
  5. AZATHIOPRINE [Concomitant]
  6. HYDROCHLOROTHIAZIDE [Concomitant]
  7. CLARITHROMYCIN [Concomitant]
  8. AMOXICILLIN [Concomitant]
  9. OMEPRAZOLE [Concomitant]
  10. LIALDA [Concomitant]

REACTIONS (1)
  - Porphyria [None]
